FAERS Safety Report 7323075-9 (Version None)
Quarter: 2011Q1

REPORT INFORMATION
  Report Type: 
  Country: None (occurrence: None)
  Receive Date: 20110301
  Receipt Date: 20110222
  Transmission Date: 20110831
  Serious: Yes (Other)
  Sender: FDA-Public Use
  Company Number: FR-JNJFOC-20101208406

PATIENT
  Sex: Male

DRUGS (4)
  1. TALOXA [Concomitant]
     Indication: EPILEPSY
     Route: 048
  2. TOPIRAMATE [Suspect]
     Indication: EPILEPSY
     Route: 048
  3. VIMPAT [Concomitant]
     Indication: EPILEPSY
     Route: 048
  4. TRILEPTAL [Concomitant]
     Indication: EPILEPSY
     Route: 048

REACTIONS (3)
  - SALIVARY GLAND CALCULUS [None]
  - CHOLESTASIS [None]
  - GAMMA-GLUTAMYLTRANSFERASE INCREASED [None]
